FAERS Safety Report 6264855-0 (Version None)
Quarter: 2009Q3

REPORT INFORMATION
  Report Type: 
  Country: None (occurrence: None)
  Receive Date: 20090710
  Receipt Date: 20090702
  Transmission Date: 20100115
  Serious: Yes (Other)
  Sender: FDA-Public Use
  Company Number: GB-B.I. PHARMACEUTICALS,INC./RIDGEFIELD-2009-UK-00464UK

PATIENT
  Sex: Female

DRUGS (2)
  1. VIRAMUNE [Suspect]
     Indication: HIV INFECTION
     Dosage: 400 MG
     Route: 048
     Dates: start: 20070101, end: 20090301
  2. KIVEXA [Concomitant]
     Indication: ANTIRETROVIRAL THERAPY
     Dosage: 1 ANZ
     Route: 048
     Dates: start: 20070101, end: 20090301

REACTIONS (3)
  - DRUG RESISTANCE [None]
  - MEDICATION ERROR [None]
  - VIROLOGIC FAILURE [None]
